FAERS Safety Report 9202517 (Version 2)
Quarter: 2013Q2

REPORT INFORMATION
  Report Type: Spontaneous
  Country: US (occurrence: US)
  Receive Date: 20130401
  Receipt Date: 20130517
  Transmission Date: 20140414
  Serious: Yes (Other)
  Sender: FDA-Public Use
  Company Number: US-FRI-1000043861

PATIENT
  Sex: Male

DRUGS (2)
  1. BYSTOLIC [Suspect]
     Indication: HYPERTENSION
     Dosage: 10MG
     Route: 048
  2. BYSTOLIC [Suspect]
     Indication: HYPERTENSION
     Dosage: 5MG
     Route: 048

REACTIONS (2)
  - Blood pressure decreased [Recovered/Resolved]
  - Weight decreased [Not Recovered/Not Resolved]
